FAERS Safety Report 7937333-8 (Version None)
Quarter: 2011Q4

REPORT INFORMATION
  Report Type: 
  Country: None (occurrence: None)
  Receive Date: 20111123
  Receipt Date: 20110906
  Transmission Date: 20120403
  Serious: No
  Sender: FDA-Public Use
  Company Number: US-BAYER-2011-088885

PATIENT
  Age: 83 Year
  Sex: Female
  Weight: 72 kg

DRUGS (18)
  1. VASOTEC [Concomitant]
  2. ASPIRIN [Concomitant]
  3. AMBIEN [Concomitant]
  4. ACTONEL [Concomitant]
  5. TOPROL-XL [Concomitant]
  6. IMIPRAMINE [Concomitant]
  7. GLUCOPHAGE [Concomitant]
  8. LIPITOR [Concomitant]
  9. ALEVE (CAPLET) [Suspect]
     Indication: ROTATOR CUFF SYNDROME
  10. VASERETIC [Concomitant]
  11. RESTASIS [Concomitant]
  12. FISH OIL [Concomitant]
  13. MULTIVITAMIN [Concomitant]
  14. CITRACAL [Concomitant]
  15. PRESERVISION EYE VITAMIN AND MINERAL SUPPL. [Concomitant]
  16. ALEVE (CAPLET) [Suspect]
     Indication: ANALGESIC THERAPY
     Dosage: 2 DF, BID
     Dates: start: 20110801
  17. TESTOSTERONE [Concomitant]
  18. PREDNISONE TAB [Concomitant]

REACTIONS (2)
  - PRURITUS [None]
  - RASH GENERALISED [None]
